FAERS Safety Report 6104933-X (Version None)
Quarter: 2009Q1

REPORT INFORMATION
  Report Type: 
  Country: None (occurrence: None)
  Receive Date: 20090306
  Receipt Date: 20090226
  Transmission Date: 20090719
  Serious: Yes (Hospitalization, Other)
  Sender: FDA-Public Use
  Company Number: US-AMGEN-QUU335959

PATIENT
  Sex: Female

DRUGS (4)
  1. ENBREL [Suspect]
     Indication: RHEUMATOID ARTHRITIS
  2. ENBREL [Suspect]
     Indication: OSTEOARTHRITIS
  3. HUMIRA [Concomitant]
     Dates: end: 20080101
  4. UNSPECIFIED MEDICATION [Concomitant]

REACTIONS (3)
  - BREAST CANCER [None]
  - METAL POISONING [None]
  - RHEUMATOID ARTHRITIS [None]
